FAERS Safety Report 5263490-0 (Version None)
Quarter: 2007Q1

REPORT INFORMATION
  Report Type: 
  Country: None (occurrence: None)
  Receive Date: 20070313
  Receipt Date: 20070308
  Transmission Date: 20070707
  Serious: Yes (Death, Life-Threatening)
  Sender: FDA-Public Use
  Company Number: JP-AVENTIS-200710519JP

PATIENT
  Age: 53 Year
  Sex: Female
  Weight: 62 kg

DRUGS (6)
  1. TAXOTERE [Suspect]
     Route: 041
     Dates: start: 20060630, end: 20060727
  2. HERCEPTIN [Suspect]
     Route: 041
     Dates: start: 20060630, end: 20060630
  3. HERCEPTIN [Suspect]
     Route: 041
     Dates: start: 20060727, end: 20060727
  4. LOXOPROFEN SODIUM [Suspect]
     Route: 048
     Dates: start: 20060619, end: 20060706
  5. OXYCONTIN [Concomitant]
     Route: 048
     Dates: start: 20060630, end: 20060706
  6. DECADRON [Concomitant]
     Indication: PREMEDICATION
     Dates: start: 20060630, end: 20060727

REACTIONS (3)
  - GASTROINTESTINAL PERFORATION [None]
  - PLEURAL EFFUSION [None]
  - SUDDEN DEATH [None]
